FAERS Safety Report 10267021 (Version 1)
Quarter: 2014Q2

REPORT INFORMATION
  Report Type: Spontaneous
  Country: US (occurrence: None)
  Receive Date: 20140625
  Receipt Date: 20140625
  Transmission Date: 20141212
  Serious: Yes (Other)
  Sender: FDA-Public Use
  Company Number: None

PATIENT
  Age: 44 Year
  Sex: Female
  Weight: 49.44 kg

DRUGS (1)
  1. BUTRANS [Suspect]
     Indication: ARTHRALGIA
     Dosage: 1 PER 7 DAYS 1 PATCH EVERY 7 DA APPLIED AS MEDICATED PATCH TO SKIN

REACTIONS (5)
  - Suicidal ideation [None]
  - Application site scar [None]
  - Application site discolouration [None]
  - Mental disorder [None]
  - Partner stress [None]
